FAERS Safety Report 15788716 (Version 1)
Quarter: 2018Q4

REPORT INFORMATION
  Report Type: Spontaneous
  Country: US (occurrence: US)
  Receive Date: 20181231
  Receipt Date: 20181231
  Transmission Date: 20190205
  Serious: No
  Sender: FDA-Public Use
  Company Number: None

PATIENT
  Sex: Female

DRUGS (2)
  1. CLOMIPHENE [Suspect]
     Active Substance: CLOMIPHENE
     Route: 048
  2. CLOMIPRAMINE  HCL [Suspect]
     Active Substance: CLOMIPRAMINE
     Route: 048

REACTIONS (7)
  - Fatigue [None]
  - Hangover [None]
  - Headache [None]
  - Product dispensing error [None]
  - Wrong product administered [None]
  - Somnolence [None]
  - Euphoric mood [None]
